FAERS Safety Report 15474482 (Version 1)
Quarter: 2018Q4

REPORT INFORMATION
  Report Type: Spontaneous
  Country: US (occurrence: US)
  Receive Date: 20181008
  Receipt Date: 20181008
  Transmission Date: 20190205
  Serious: No
  Sender: FDA-Public Use
  Company Number: US-SUNOVION-2018SUN003765

PATIENT
  Age: 22 Year
  Sex: Male

DRUGS (7)
  1. BENZATROPINE [Concomitant]
     Active Substance: BENZTROPINE
     Dosage: UNK
  2. LATUDA [Suspect]
     Active Substance: LURASIDONE HYDROCHLORIDE
     Dosage: 100 MG, UNK
  3. FLUVOXAMINE [Concomitant]
     Active Substance: FLUVOXAMINE
     Dosage: 200 MG, UNK
  4. LATUDA [Suspect]
     Active Substance: LURASIDONE HYDROCHLORIDE
     Dosage: 120 MG, SINGLE
  5. LATUDA [Suspect]
     Active Substance: LURASIDONE HYDROCHLORIDE
     Dosage: 119 MG, SINGLE
  6. LATUDA [Suspect]
     Active Substance: LURASIDONE HYDROCHLORIDE
     Dosage: 120 MG, UNK
     Route: 048
  7. DEPAKOTE [Concomitant]
     Active Substance: DIVALPROEX SODIUM
     Dosage: 1250 MG, UNK

REACTIONS (2)
  - Irritability [Unknown]
  - Fatigue [Unknown]
